FAERS Safety Report 21974249 (Version 1)
Quarter: 2023Q1

REPORT INFORMATION
  Report Type: Spontaneous
  Country: DE (occurrence: DE)
  Receive Date: 20230209
  Receipt Date: 20230209
  Transmission Date: 20230417
  Serious: Yes (Congenital Anomaly)
  Sender: FDA-Public Use
  Company Number: DE-EMBRYOTOX-202209851

PATIENT
  Sex: Male

DRUGS (4)
  1. VENLAFAXINE [Suspect]
     Active Substance: VENLAFAXINE HYDROCHLORIDE
     Indication: Depression
     Dosage: 150 [MG/D ], 0 - 19.5. GESTATIONAL WEEK
     Route: 064
     Dates: start: 20220418, end: 20220903
  2. FSME-IMMUN [Concomitant]
     Active Substance: TICK-BORNE ENCEPHALITIS VACCINE
     Indication: Immunisation
     Dosage: 9. - 10. GESTATIONAL WEEK
     Route: 064
  3. LEVOTHYROXINE SODIUM [Concomitant]
     Active Substance: LEVOTHYROXINE SODIUM
     Indication: Hypothyroidism
     Dosage: 100 [MCG/D ], 0.- 19.5. GESTATIONAL WEEK
     Route: 064
     Dates: start: 20220418, end: 20220903
  4. IBUPROFEN [Concomitant]
     Active Substance: IBUPROFEN
     Indication: COVID-19
     Dosage: 2X600MG DAILY FOR 3 DAYS 6.2-7.4 GESTATIONAL WEEK
     Route: 064

REACTIONS (2)
  - Spina bifida [Not Recovered/Not Resolved]
  - Foetal exposure during pregnancy [Unknown]
